FAERS Safety Report 4333195-9 (Version None)
Quarter: 2004Q2

REPORT INFORMATION
  Report Type: 
  Country: None (occurrence: None)
  Receive Date: 20040402
  Receipt Date: 20040211
  Transmission Date: 20050107
  Serious: Yes (Death)
  Sender: FDA-Public Use
  Company Number: A04200400143

PATIENT
  Sex: Male

DRUGS (3)
  1. PLAVIX [Suspect]
     Dosage: 75 MG OD
     Route: 048
  2. MARCUMAR [Suspect]
     Route: 048
  3. ASPIRIN [Suspect]
     Route: 048

REACTIONS (1)
  - DEATH [None]
